FAERS Safety Report 4451471-6 (Version None)
Quarter: 2004Q3

REPORT INFORMATION
  Report Type: 
  Country: None (occurrence: None)
  Receive Date: 20040915
  Receipt Date: 20040907
  Transmission Date: 20050211
  Serious: Yes (Other)
  Sender: FDA-Public Use
  Company Number: 2004232297US

PATIENT
  Age: 40 Year
  Sex: Female

DRUGS (3)
  1. PROVERA (MEDROXYPROFGESTERONE ACETATE) TABLET, 2.5-10 MG [Suspect]
     Dates: start: 19970201, end: 19970301
  2. PREMARIN [Suspect]
     Dates: start: 19970201, end: 19970301
  3. PREMPHASE 14/14 [Suspect]
     Dates: start: 19970301, end: 19980101

REACTIONS (2)
  - MYOCARDIAL INFARCTION [None]
  - THROMBOSIS [None]
